FAERS Safety Report 18628783 (Version 2)
Quarter: 2022Q1

REPORT INFORMATION
  Report Type: Spontaneous
  Country: US (occurrence: US)
  Receive Date: 20201217
  Receipt Date: 20220302
  Transmission Date: 20220423
  Serious: No
  Sender: FDA-Public Use
  Company Number: US-PFIZER INC-2020137782

PATIENT
  Age: 53 Year
  Sex: Female
  Weight: 106.59 kg

DRUGS (6)
  1. DEPO-ESTRADIOL [Suspect]
     Active Substance: ESTRADIOL CYPIONATE
     Indication: Transgender operation
     Dosage: 1 MG, EVERY 14 DAYS
     Dates: start: 20150520
  2. DEPO-ESTRADIOL [Suspect]
     Active Substance: ESTRADIOL CYPIONATE
     Dosage: 5MG/1ML WITH SYRINGES, STRENGTH: 1CC/MG 10 DAYS
  3. SPIRONOLACTONE [Suspect]
     Active Substance: SPIRONOLACTONE
     Dosage: 2 DF, DAILY (2 TABLETS A DAY)
  4. SPIRONOLACTONE [Suspect]
     Active Substance: SPIRONOLACTONE
     Dosage: 1 DF, DAILY
  5. ATENOLOL [Suspect]
     Active Substance: ATENOLOL
     Indication: Blood pressure abnormal
     Dosage: UNK
  6. MELOXICAM [Concomitant]
     Active Substance: MELOXICAM
     Dosage: 15 MG, 1X/DAY

REACTIONS (6)
  - Blood pressure decreased [Unknown]
  - Weight decreased [Unknown]
  - Off label use [Unknown]
  - Product prescribing error [Unknown]
  - Product dose omission issue [Unknown]
  - Intentional product misuse [Unknown]

NARRATIVE: CASE EVENT DATE: 20150520
